FAERS Safety Report 11780417 (Version 2)
Quarter: 2015Q4

REPORT INFORMATION
  Report Type: Spontaneous
  Country: US (occurrence: US)
  Receive Date: 20151126
  Receipt Date: 20151218
  Transmission Date: 20160305
  Serious: No
  Sender: FDA-Public Use
  Company Number: US-JNJFOC-20151019584

PATIENT
  Sex: Female
  Weight: 53.52 kg

DRUGS (1)
  1. VISINE A [Suspect]
     Active Substance: NAPHAZOLINE HYDROCHLORIDE\PHENIRAMINE MALEATE
     Indication: EYE ALLERGY
     Dosage: EVERY MORNING FOR 2 WEEKS
     Route: 047
     Dates: end: 20151022

REACTIONS (4)
  - Abnormal sensation in eye [Recovered/Resolved]
  - Asthenopia [Recovered/Resolved]
  - Eye pruritus [Recovered/Resolved]
  - Drug ineffective [Unknown]
